FAERS Safety Report 13875213 (Version 1)
Quarter: 2017Q3

REPORT INFORMATION
  Report Type: Other
  Country: GB (occurrence: CN)
  Receive Date: 20170816
  Receipt Date: 20170816
  Transmission Date: 20171127
  Serious: Yes (Life-Threatening, Hospitalization, Other)
  Sender: FDA-Public Use
  Company Number: CN-INTERNATIONAL MEDICATION SYSTEMS, LIMITED-2024726

PATIENT
  Age: 50 Year
  Sex: Female

DRUGS (3)
  1. LIDOCAINE TOPICAL [Suspect]
     Active Substance: LIDOCAINE
     Indication: LOCAL ANAESTHESIA
     Route: 061
     Dates: start: 2014
  2. PROPOFOL. [Concomitant]
     Active Substance: PROPOFOL
     Route: 042
     Dates: start: 2014
  3. OXYGEN. [Concomitant]
     Active Substance: OXYGEN
     Route: 045
     Dates: start: 2014

REACTIONS (7)
  - Ventricular extrasystoles [None]
  - Coma [None]
  - Toxicity to various agents [None]
  - Pleural thickening [None]
  - Pericardial fibrosis [None]
  - Cerebral disorder [None]
  - Pulmonary alveolar haemorrhage [None]
